FAERS Safety Report 13304764 (Version 1)
Quarter: 2017Q1

REPORT INFORMATION
  Report Type: Report from Study
  Country: US (occurrence: US)
  Receive Date: 20170308
  Receipt Date: 20170308
  Transmission Date: 20170428
  Serious: No
  Sender: FDA-Public Use
  Company Number: US-AMGEN-USASL2017032970

PATIENT
  Age: 78 Year
  Sex: Female

DRUGS (6)
  1. BIOFLEX [Concomitant]
     Active Substance: GLUCOSAMINE SULFATE
     Dosage: UNK
  2. VITAMIN D [Concomitant]
     Active Substance: CHOLECALCIFEROL
     Dosage: 1000 MG, UNK
  3. ENBREL [Suspect]
     Active Substance: ETANERCEPT
     Indication: RHEUMATOID ARTHRITIS
     Dosage: 50 MG, QWK
     Route: 065
     Dates: start: 201611
  4. HYDROXYCHLOROQUINE [Concomitant]
     Active Substance: HYDROXYCHLOROQUINE
     Dosage: 100 MG, BID
  5. VITAMIN C [Concomitant]
     Active Substance: ASCORBIC ACID
     Dosage: 1000 MG, UNK
  6. IRON [Concomitant]
     Active Substance: IRON
     Dosage: UNK

REACTIONS (5)
  - Rash [Unknown]
  - Skin tightness [Unknown]
  - Secretion discharge [Unknown]
  - Skin abrasion [Unknown]
  - Pain in extremity [Unknown]

NARRATIVE: CASE EVENT DATE: 201611
